FAERS Safety Report 14601167 (Version 1)
Quarter: 2018Q1

REPORT INFORMATION
  Report Type: Spontaneous
  Country: US (occurrence: US)
  Receive Date: 20180305
  Receipt Date: 20180305
  Transmission Date: 20180509
  Serious: Yes (Hospitalization)
  Sender: FDA-Public Use
  Company Number: US-LUNDBECK-DKLU2043589

PATIENT
  Age: 10 Month
  Sex: Male

DRUGS (3)
  1. SABRIL [Suspect]
     Active Substance: VIGABATRIN
     Route: 048
     Dates: start: 20171222
  2. SABRIL [Suspect]
     Active Substance: VIGABATRIN
     Indication: INFANTILE SPASMS
     Route: 048
     Dates: start: 20171222
  3. SABRIL [Suspect]
     Active Substance: VIGABATRIN
     Indication: SEIZURE
     Route: 048
     Dates: start: 20171129

REACTIONS (1)
  - Posthaemorrhagic hydrocephalus [Unknown]

NARRATIVE: CASE EVENT DATE: 20180109
